FAERS Safety Report 8167802-X (Version None)
Quarter: 2012Q1

REPORT INFORMATION
  Report Type: 
  Country: None (occurrence: None)
  Receive Date: 20120227
  Receipt Date: 20120216
  Transmission Date: 20120608
  Serious: Yes (Other)
  Sender: FDA-Public Use
  Company Number: US-BAXTER-2012BH004569

PATIENT
  Age: 37 Year
  Sex: Female

DRUGS (4)
  1. EXTRANEAL [Suspect]
     Route: 033
     Dates: start: 20120117
  2. EXTRANEAL [Suspect]
     Indication: PERITONEAL DIALYSIS
     Route: 033
     Dates: end: 20120101
  3. DIANEAL [Suspect]
     Route: 033
     Dates: start: 20120117
  4. DIANEAL [Suspect]
     Indication: PERITONEAL DIALYSIS
     Route: 033
     Dates: end: 20120101

REACTIONS (1)
  - MYOCARDIAL INFARCTION [None]
